FAERS Safety Report 21877895 (Version 2)
Quarter: 2023Q4

REPORT INFORMATION
  Report Type: Spontaneous
  Country: HR (occurrence: HR)
  Receive Date: 20230118
  Receipt Date: 20231023
  Transmission Date: 20240110
  Serious: Yes (Other)
  Sender: FDA-Public Use
  Company Number: HR-002147023-NVSC2022HR265025

PATIENT
  Sex: Female

DRUGS (1)
  1. FINGOLIMOD [Suspect]
     Active Substance: FINGOLIMOD
     Indication: Relapsing-remitting multiple sclerosis
     Dosage: UNK
     Route: 065
     Dates: start: 2017, end: 2022

REACTIONS (7)
  - Multiple sclerosis relapse [Unknown]
  - Multiple sclerosis [Unknown]
  - Paraparesis [Unknown]
  - Lymphocyte count decreased [Unknown]
  - Generalised anxiety disorder [Unknown]
  - Cognitive disorder [Unknown]
  - Avoidant personality disorder [Unknown]

NARRATIVE: CASE EVENT DATE: 20170101
